FAERS Safety Report 15127196 (Version 2)
Quarter: 2018Q3

REPORT INFORMATION
  Report Type: Report from Study
  Country: DE (occurrence: DE)
  Receive Date: 20180710
  Receipt Date: 20180722
  Transmission Date: 20181010
  Serious: Yes (Other)
  Sender: FDA-Public Use
  Company Number: DE-BAXTER-2018BAX009639

PATIENT
  Sex: Female
  Weight: 76 kg

DRUGS (47)
  1. RIXIMYO [Suspect]
     Active Substance: RITUXIMAB
     Dosage: 724 MG, UNK
     Route: 041
     Dates: start: 20180328, end: 20180328
  2. RIXIMYO [Suspect]
     Active Substance: RITUXIMAB
     Dosage: 709 MG, (INFUSION TIME 09:25?12:25)
     Route: 041
     Dates: start: 20180508, end: 20180508
  3. DOXORUBICIN [Suspect]
     Active Substance: DOXORUBICIN
     Dosage: 94.5 MG, (INFUSION TIME 09:45?10:10)
     Route: 041
     Dates: start: 20180412, end: 20180412
  4. PREDNISONE. [Suspect]
     Active Substance: PREDNISONE
     Dosage: 4 MG, UNK
     Route: 048
     Dates: start: 20180328, end: 20180328
  5. TAVEGIL [Concomitant]
     Active Substance: CLEMASTINE FUMARATE
     Indication: PROPHYLAXIS
     Dosage: 5X2ML
     Route: 048
     Dates: start: 20180228
  6. DEKRISTOL [Concomitant]
     Active Substance: CHOLECALCIFEROL
     Indication: VITAMIN D DEFICIENCY
     Dosage: UNK
     Route: 048
     Dates: start: 20180221
  7. ENDOXAN 1G [Suspect]
     Active Substance: CYCLOPHOSPHAMIDE
     Indication: DIFFUSE LARGE B-CELL LYMPHOMA
     Dosage: 1448 MG, UNK
     Route: 041
     Dates: start: 20180301, end: 20180301
  8. VINCRISTINE [Suspect]
     Active Substance: VINCRISTINE
     Dosage: 2 MG, (INFUSION TIME 11:30 TO 11:32)
     Route: 041
     Dates: start: 20180315, end: 20180315
  9. VINCRISTINE [Suspect]
     Active Substance: VINCRISTINE
     Dosage: 2 MG, (INFUSION TIME 10:15?10:17)
     Route: 041
     Dates: start: 20180509, end: 20180509
  10. DOXORUBICIN [Suspect]
     Active Substance: DOXORUBICIN
     Dosage: 94.5 MG, (INFUSION TIME 09:10?09:35)
     Route: 041
     Dates: start: 20180426, end: 20180426
  11. SOLU DECORTIN [Concomitant]
     Active Substance: PREDNISOLONE SODIUM SUCCINATE
     Indication: PROPHYLAXIS
     Dosage: UNK
     Route: 042
     Dates: start: 20180228
  12. PANTOZOL [Concomitant]
     Active Substance: PANTOPRAZOLE SODIUM
     Indication: PROPHYLAXIS
     Dosage: 20 MG, UNK
     Route: 048
     Dates: start: 20180221
  13. ENDOXAN 1G [Suspect]
     Active Substance: CYCLOPHOSPHAMIDE
     Dosage: 1417.5 MG, (INFUSION TIME 10:45?11:45)
     Route: 041
     Dates: start: 20180412, end: 20180412
  14. RIXIMYO [Suspect]
     Active Substance: RITUXIMAB
     Dosage: 709 MG, (INFUSION TIME 10:30 TO 13:30)
     Route: 041
     Dates: start: 20180411, end: 20180411
  15. PREDNISONE. [Suspect]
     Active Substance: PREDNISONE
     Indication: DIFFUSE LARGE B-CELL LYMPHOMA
     Dosage: 200 MG, UNK
     Route: 048
     Dates: start: 20180315, end: 20180319
  16. PREDNISONE. [Suspect]
     Active Substance: PREDNISONE
     Dosage: 4 MG, UNK
     Route: 048
     Dates: start: 20180529, end: 20180529
  17. PREDNISONE. [Suspect]
     Active Substance: PREDNISONE
     Dosage: 4 MG, UNK
     Route: 048
     Dates: start: 20180411, end: 20180411
  18. GRANISETRON [Concomitant]
     Active Substance: GRANISETRON
     Indication: PROPHYLAXIS
     Dosage: 1 MG, UNK
     Route: 048
     Dates: start: 20180228
  19. ENDOXAN 1G [Suspect]
     Active Substance: CYCLOPHOSPHAMIDE
     Dosage: 1417.5 MG, (INFUSION TIME 11:30?12:45)
     Route: 041
     Dates: start: 20180509, end: 20180509
  20. RIXIMYO [Suspect]
     Active Substance: RITUXIMAB
     Indication: DIFFUSE LARGE B-CELL LYMPHOMA
     Dosage: 724 MG, UNK
     Route: 041
     Dates: start: 20180228, end: 20180228
  21. RIXIMYO [Suspect]
     Active Substance: RITUXIMAB
     Dosage: 724 MG, (INFUSION TIME 10:40 TO 13:50)
     Route: 041
     Dates: start: 20180314, end: 20180314
  22. VINCRISTINE [Suspect]
     Active Substance: VINCRISTINE
     Indication: DIFFUSE LARGE B-CELL LYMPHOMA
     Dosage: 2 MG, UNK
     Route: 041
     Dates: start: 20180301, end: 20180301
  23. VINCRISTINE [Suspect]
     Active Substance: VINCRISTINE
     Dosage: 2 MG, (INFUSION TIME 08:50?08:52)
     Route: 041
     Dates: start: 20180426, end: 20180426
  24. DOXORUBICIN [Suspect]
     Active Substance: DOXORUBICIN
     Indication: DIFFUSE LARGE B-CELL LYMPHOMA
     Dosage: 96.5 MG, UNK
     Route: 041
     Dates: start: 20180301, end: 20180301
  25. DOXORUBICIN [Suspect]
     Active Substance: DOXORUBICIN
     Dosage: 96.5 MG, (INFUSION TIME 10:45?11:15)
     Route: 041
     Dates: start: 20180329, end: 20180329
  26. PREDNISONE. [Suspect]
     Active Substance: PREDNISONE
     Dosage: 4 MG, UNK
     Route: 048
     Dates: start: 20180314, end: 20180314
  27. ALLOPURINOL. [Concomitant]
     Active Substance: ALLOPURINOL
     Indication: PROPHYLAXIS
     Dosage: UNK
     Route: 048
     Dates: start: 20180221
  28. RIXIMYO [Suspect]
     Active Substance: RITUXIMAB
     Dosage: 709 MG
     Route: 041
     Dates: start: 20180619
  29. DOXORUBICIN [Suspect]
     Active Substance: DOXORUBICIN
     Dosage: 96.5 MG, (INFUSION TIME 10:30?10:55)
     Route: 041
     Dates: start: 20180509, end: 20180509
  30. PREDNISONE. [Suspect]
     Active Substance: PREDNISONE
     Dosage: 4 MG, UNK
     Route: 048
     Dates: start: 20180228, end: 20180228
  31. EMEND (FOSAPREPITANT DIMEGLUMINE) [Concomitant]
     Active Substance: FOSAPREPITANT DIMEGLUMINE
     Indication: PROPHYLAXIS
     Dosage: 80 MG, UNK
     Route: 048
     Dates: start: 20180301
  32. VENLAFAXIN [Concomitant]
     Active Substance: VENLAFAXINE HYDROCHLORIDE
     Indication: PRODUCT USED FOR UNKNOWN INDICATION
     Dosage: 75 MG, QD
     Route: 048
     Dates: start: 20180205
  33. ENDOXAN 1G [Suspect]
     Active Substance: CYCLOPHOSPHAMIDE
     Dosage: 1448 MG, (INFUSION TIME 12:35 TO 14:10)
     Route: 041
     Dates: start: 20180315, end: 20180315
  34. VINCRISTINE [Suspect]
     Active Substance: VINCRISTINE
     Dosage: 2 MG, (INFUSION TIME 10:30?10:32)
     Route: 041
     Dates: start: 20180329, end: 20180329
  35. VINCRISTINE [Suspect]
     Active Substance: VINCRISTINE
     Dosage: 2 MG, (INFUSION TIME 09:25?09:27)
     Route: 041
     Dates: start: 20180412, end: 20180412
  36. DOXORUBICIN [Suspect]
     Active Substance: DOXORUBICIN
     Dosage: 96.5 MG, (INFUSION TIME 11:55?12:15)
     Route: 041
     Dates: start: 20180315, end: 20180315
  37. NEULASTA [Concomitant]
     Active Substance: PEGFILGRASTIM
     Indication: PRODUCT USED FOR UNKNOWN INDICATION
     Dosage: UNK
     Route: 042
     Dates: start: 20180301
  38. MIRTAZPEN [Concomitant]
     Indication: PRODUCT USED FOR UNKNOWN INDICATION
     Dosage: 15 MG, QD
     Route: 048
     Dates: start: 20180205
  39. ENDOXAN 1G [Suspect]
     Active Substance: CYCLOPHOSPHAMIDE
     Dosage: 1448 MG, (INFUSION TIME 11:45?13:15)
     Route: 041
     Dates: start: 20180329, end: 20180329
  40. RIXIMYO [Suspect]
     Active Substance: RITUXIMAB
     Dosage: 709 MG, (INFUSION TIME 8:55?11:45)
     Route: 041
     Dates: start: 20180529, end: 20180529
  41. PREDNISONE. [Suspect]
     Active Substance: PREDNISONE
     Indication: PRODUCT USED FOR UNKNOWN INDICATION
     Dosage: 4 MG, UNK
     Route: 048
     Dates: start: 20180619
  42. COTRIM [Concomitant]
     Active Substance: SULFAMETHOXAZOLE\TRIMETHOPRIM
     Indication: PROPHYLAXIS
     Dosage: UNK
     Route: 048
     Dates: start: 20180221
  43. IVEMEND [Concomitant]
     Active Substance: FOSAPREPITANT DIMEGLUMINE
     Indication: PROPHYLAXIS
     Dosage: 150 MG, UNK
     Route: 042
     Dates: start: 20180301
  44. MOVICOL [Concomitant]
     Active Substance: POLYETHYLENE GLYCOL 3350\POTASSIUM CHLORIDE\SODIUM BICARBONATE\SODIUM CHLORIDE
     Indication: PROPHYLAXIS
     Dosage: UNK
     Route: 048
     Dates: start: 20180310, end: 20180314
  45. ENDOXAN 1G [Suspect]
     Active Substance: CYCLOPHOSPHAMIDE
     Dosage: 1417.5 MG, (INFUSION TIME 10:05?11:35)
     Route: 041
     Dates: start: 20180426, end: 20180426
  46. PREDNISONE. [Suspect]
     Active Substance: PREDNISONE
     Dosage: 4 MG, UNK
     Route: 048
     Dates: start: 20180425, end: 20180425
  47. UROMITEXAN [Concomitant]
     Active Substance: MESNA
     Indication: PROPHYLAXIS
     Dosage: 600 MG, UNK
     Route: 048
     Dates: start: 20180301

REACTIONS (11)
  - Neutropenia [Recovered/Resolved]
  - Oral candidiasis [Recovered/Resolved]
  - Dysphagia [Recovered/Resolved]
  - Constipation [Recovered/Resolved]
  - Anaemia [Recovered/Resolved]
  - Anaemia [Recovered/Resolved]
  - Dyspepsia [Recovered/Resolved]
  - Neutropenia [Recovered/Resolved]
  - Neutropenia [Recovered/Resolved]
  - Erythema [Recovered/Resolved]
  - Oral pain [Recovered/Resolved]

NARRATIVE: CASE EVENT DATE: 20180310
